FAERS Safety Report 9014597 (Version 1)
Quarter: 2013Q1

REPORT INFORMATION
  Report Type: Spontaneous
  Country: US (occurrence: US)
  Receive Date: 20130115
  Receipt Date: 20130115
  Transmission Date: 20140127
  Serious: No
  Sender: FDA-Public Use
  Company Number: US-NOVEN-12US005748

PATIENT
  Age: 82 None
  Sex: Male

DRUGS (1)
  1. FENTANYL [Suspect]
     Indication: NEOPLASM MALIGNANT
     Dosage: 25 UG/HR
     Route: 062
     Dates: start: 20121128, end: 20121128

REACTIONS (1)
  - Nausea [Recovering/Resolving]
